FAERS Safety Report 6996717-5 (Version None)
Quarter: 2010Q3

REPORT INFORMATION
  Report Type: 
  Country: None (occurrence: None)
  Receive Date: 20100918
  Receipt Date: 20090616
  Transmission Date: 20110219
  Serious: No
  Sender: FDA-Public Use
  Company Number: US-WYE-H09786509

PATIENT
  Age: 23 Year
  Sex: Female

DRUGS (1)
  1. EFFEXOR XR [Suspect]
     Dosage: UNKNOWN DOSE 10 YEARS AGO, THEN 150 MG NOW D/C'ING  BY BREAKING UP PILLS AND TAKING LESS AMOUNTS
     Route: 048

REACTIONS (4)
  - DRUG WITHDRAWAL SYNDROME [None]
  - MIGRAINE [None]
  - NAUSEA [None]
  - VOMITING [None]
